FAERS Safety Report 24447981 (Version 2)
Quarter: 2024Q4

REPORT INFORMATION
  Report Type: Report from Study
  Country: US (occurrence: US)
  Receive Date: 20241016
  Receipt Date: 20241111
  Transmission Date: 20250115
  Serious: Yes (Hospitalization, Other)
  Sender: NOVARTIS
  Company Number: US-002147023-NVSC2024US116193

PATIENT
  Age: 60 Year
  Sex: Female
  Weight: 43.991 kg

DRUGS (2)
  1. LAMPRENE [Suspect]
     Active Substance: CLOFAZIMINE
     Indication: Mycobacterium avium complex infection
     Dosage: 100 MG, QD
     Route: 048
     Dates: start: 20240326, end: 20240816
  2. ETHAMBUTOL [Concomitant]
     Active Substance: ETHAMBUTOL HYDROCHLORIDE
     Indication: Product used for unknown indication
     Dosage: UNK
     Route: 065

REACTIONS (9)
  - Acute kidney injury [Recovered/Resolved]
  - Pneumonia [Not Recovered/Not Resolved]
  - Pleural effusion [Recovering/Resolving]
  - Aspergillus infection [Not Recovered/Not Resolved]
  - Oesophageal candidiasis [Not Recovered/Not Resolved]
  - Vision blurred [Recovering/Resolving]
  - Night sweats [Unknown]
  - Headache [Unknown]
  - Tremor [Unknown]

NARRATIVE: CASE EVENT DATE: 20240425
